FAERS Safety Report 9548948 (Version 2)
Quarter: 2013Q4

REPORT INFORMATION
  Report Type: Report from Study
  Country: CA (occurrence: CA)
  Receive Date: 20130924
  Receipt Date: 20131011
  Transmission Date: 20140711
  Serious: No
  Sender: FDA-Public Use
  Company Number: PHHY2013CA106096

PATIENT
  Sex: Male

DRUGS (2)
  1. CLOZARIL [Suspect]
     Indication: SCHIZOPHRENIA
     Dosage: UNK UKN, UNK
     Route: 048
     Dates: start: 20081018
  2. CLOZARIL [Suspect]
     Dosage: 500 MG, QD
     Route: 048
     Dates: start: 201309

REACTIONS (1)
  - Blood prolactin increased [Unknown]
